FAERS Safety Report 12454272 (Version 1)
Quarter: 2016Q2

REPORT INFORMATION
  Report Type: Spontaneous
  Country: US (occurrence: US)
  Receive Date: 20160610
  Receipt Date: 20160610
  Transmission Date: 20160815
  Serious: No
  Sender: FDA-Public Use
  Company Number: US-TEVA-645200USA

PATIENT
  Sex: Female

DRUGS (1)
  1. RISEDRONATE SODIUM DELAYED-RELEASE [Suspect]
     Active Substance: RISEDRONATE SODIUM
     Route: 065

REACTIONS (4)
  - Abdominal pain [Unknown]
  - Abdominal discomfort [Unknown]
  - Muscle spasms [Unknown]
  - Adverse event [Unknown]
